FAERS Safety Report 11144170 (Version 1)
Quarter: 2015Q2

REPORT INFORMATION
  Report Type: Spontaneous
  Country: US (occurrence: US)
  Receive Date: 20150528
  Receipt Date: 20150528
  Transmission Date: 20150821
  Serious: Yes (Hospitalization)
  Sender: FDA-Public Use
  Company Number: US-JNJFOC-20150515579

PATIENT
  Age: 57 Year
  Sex: Female
  Weight: 102.51 kg

DRUGS (4)
  1. SIMPONI [Suspect]
     Active Substance: GOLIMUMAB
     Indication: OSTEOPOROSIS
     Route: 058
     Dates: start: 2014, end: 20150521
  2. SIMPONI [Suspect]
     Active Substance: GOLIMUMAB
     Indication: OSTEOARTHRITIS
     Route: 058
     Dates: start: 2014, end: 20150521
  3. SIMPONI [Suspect]
     Active Substance: GOLIMUMAB
     Indication: RHEUMATOID ARTHRITIS
     Route: 058
     Dates: start: 2014, end: 20150521
  4. SIMPONI [Suspect]
     Active Substance: GOLIMUMAB
     Indication: GOUT
     Route: 058
     Dates: start: 2014, end: 20150521

REACTIONS (4)
  - Osteoarthritis [Recovered/Resolved]
  - Arthritis [Not Recovered/Not Resolved]
  - Unevaluable event [Recovered/Resolved]
  - Off label use [Unknown]

NARRATIVE: CASE EVENT DATE: 2014
